FAERS Safety Report 9117233 (Version 2)
Quarter: 2013Q3

REPORT INFORMATION
  Report Type: Spontaneous
  Country: US (occurrence: US)
  Receive Date: 20130208
  Receipt Date: 20130913
  Transmission Date: 20140515
  Serious: Yes (Death, Hospitalization)
  Sender: FDA-Public Use
  Company Number: US-B.I. PHARMACEUTICALS,INC./RIDGEFIELD-2013-BI-03388BP

PATIENT
  Age: 80 Year
  Sex: Male
  Weight: 81.65 kg

DRUGS (12)
  1. PRADAXA [Suspect]
     Indication: ATRIAL FIBRILLATION
     Dates: start: 201101
  2. ALBUTEROL [Concomitant]
  3. ALLOPURINOL [Concomitant]
  4. ASPIRIN [Concomitant]
     Indication: ATRIAL FIBRILLATION
  5. LIPITOR [Concomitant]
  6. ADVAIR [Concomitant]
  7. REQUIP [Concomitant]
  8. DETROL LA [Concomitant]
  9. PLAVIX [Concomitant]
     Indication: ATRIAL FIBRILLATION
  10. LASIX [Concomitant]
  11. METOPROLOL [Concomitant]
  12. METOLAZONE [Concomitant]

REACTIONS (3)
  - Cerebrovascular accident [Fatal]
  - Cerebral haemorrhage [Unknown]
  - Subarachnoid haemorrhage [Unknown]
